FAERS Safety Report 9505437 (Version 1)
Quarter: 2013Q1

REPORT INFORMATION
  Report Type: Spontaneous
  Country: US (occurrence: None)
  Receive Date: 20130220
  Receipt Date: 20130220
  Transmission Date: 20140127
  Serious: No
  Sender: FDA-Public Use
  Company Number: 1000041659

PATIENT
  Age: 64 Year
  Sex: Female

DRUGS (2)
  1. VIIBRYD (VILAZODONE HYDROCHLORIDE) (TABLETS) [Suspect]
     Indication: ANXIETY
     Dosage: (5 MG, 1 IN 1 D)
     Route: 048
     Dates: start: 2012, end: 2012
  2. VIIBRYD (VILAZODONE HYDROCHLORIDE) (TABLETS) [Suspect]
     Indication: ANXIETY
     Dosage: (10 MG, 1 IN 1 D)
     Route: 048
     Dates: start: 2012, end: 2012

REACTIONS (2)
  - Abdominal discomfort [None]
  - Off label use [None]
